FAERS Safety Report 12292910 (Version 1)
Quarter: 2016Q2

REPORT INFORMATION
  Report Type: Report from Study
  Country: US (occurrence: US)
  Receive Date: 20160421
  Receipt Date: 20160421
  Transmission Date: 20160815
  Serious: No
  Sender: FDA-Public Use
  Company Number: US-AMGEN-USASP2016038627

PATIENT
  Age: 61 Year
  Sex: Male

DRUGS (2)
  1. REPATHA [Suspect]
     Active Substance: EVOLOCUMAB
     Indication: BLOOD CHOLESTEROL INCREASED
  2. REPATHA [Suspect]
     Active Substance: EVOLOCUMAB
     Indication: ARTERIOSCLEROSIS
     Dosage: 140 MG, TWICE A MONTH
     Route: 065
     Dates: start: 20160213

REACTIONS (4)
  - Feeling abnormal [Recovered/Resolved]
  - Impaired work ability [Unknown]
  - Motion sickness [Not Recovered/Not Resolved]
  - Fatigue [Unknown]
